FAERS Safety Report 11088954 (Version 4)
Quarter: 2017Q4

REPORT INFORMATION
  Report Type: Spontaneous
  Country: IT (occurrence: IT)
  Receive Date: 20150504
  Receipt Date: 20171211
  Transmission Date: 20180320
  Serious: Yes (Hospitalization, Disabling, Other)
  Sender: FDA-Public Use
  Company Number: IT-OTSUKA-DJ201501890

PATIENT
  Sex: Female
  Weight: 60 kg

DRUGS (8)
  1. RIVOTRIL [Concomitant]
     Active Substance: CLONAZEPAM
     Indication: INSOMNIA
     Dosage: 3 MG (AVERAGE), UNK
     Route: 048
     Dates: start: 20120801, end: 20150115
  2. CLONAZEPAM. [Concomitant]
     Active Substance: CLONAZEPAM
     Indication: INSOMNIA
     Dosage: 3 MG, UNK
     Route: 048
     Dates: start: 20120801, end: 20150115
  3. ARIPIPRAZOLE. [Suspect]
     Active Substance: ARIPIPRAZOLE
     Indication: BIPOLAR I DISORDER
     Dosage: 15 MG, QD
     Route: 048
     Dates: start: 20131204, end: 20141016
  4. ZIPRASIDONE. [Suspect]
     Active Substance: ZIPRASIDONE
     Dosage: 40 MG, QD
     Route: 048
     Dates: start: 20131030, end: 20131204
  5. ZIPRASIDONE. [Suspect]
     Active Substance: ZIPRASIDONE
     Indication: BIPOLAR I DISORDER
     Dosage: 80 MG, QD
     Route: 060
     Dates: start: 20120204, end: 20130220
  6. SYCREST [Suspect]
     Active Substance: ASENAPINE MALEATE
     Indication: BIPOLAR I DISORDER
     Dosage: 20 MG, BID
     Route: 048
     Dates: start: 20141017, end: 20150228
  7. SYCREST [Suspect]
     Active Substance: ASENAPINE MALEATE
     Dosage: 15 MG, QD
     Route: 048
     Dates: start: 20150228
  8. CARBOLITHIUM [Concomitant]
     Active Substance: LITHIUM CARBONATE
     Indication: BIPOLAR I DISORDER
     Dosage: 300MG+300MG+450M G/DIE, QD
     Route: 048
     Dates: start: 20141219, end: 20150312

REACTIONS (4)
  - Apathy [Unknown]
  - Balance disorder [Recovering/Resolving]
  - Cerebral atrophy [Not Recovered/Not Resolved]
  - Suicidal ideation [Unknown]
